FAERS Safety Report 9516881 (Version 1)
Quarter: 2013Q1

REPORT INFORMATION
  Report Type: Spontaneous
  Country: US (occurrence: None)
  Receive Date: 20130305
  Receipt Date: 20130305
  Transmission Date: 20140127
  Serious: Yes (Other)
  Sender: FDA-Public Use
  Company Number: 163-21880-12011086

PATIENT
  Age: 68 Year
  Sex: Female

DRUGS (7)
  1. REVLIMID [Suspect]
     Indication: PLASMA CELL MYELOMA
     Route: 048
     Dates: start: 20111115, end: 20120119
  2. ULTRAM (TRAMADOL HYDROCHLORIDE) [Concomitant]
  3. ACYCLOVIR (ACICLOVIR) (ACICLOVIR) [Concomitant]
  4. NORVASC (AMLODIPINE BESILATE) [Concomitant]
  5. ASA (ACETYLSALICYLIC ACID) [Concomitant]
  6. AVAPRO (IRBESARTAN) [Concomitant]
  7. AMOXICILLIN (AMOXICILLIN) [Concomitant]

REACTIONS (1)
  - Neutropenia [None]
